FAERS Safety Report 21043170 (Version 1)
Quarter: 2022Q3

REPORT INFORMATION
  Report Type: Spontaneous
  Country: US (occurrence: None)
  Receive Date: 20220702
  Receipt Date: 20220702
  Transmission Date: 20221026
  Serious: No
  Sender: FDA-Public Use
  Company Number: None

PATIENT
  Sex: Male
  Weight: 74.8 kg

DRUGS (2)
  1. BENDAMUSTINE HYDROCHLORIDE [Suspect]
     Active Substance: BENDAMUSTINE HYDROCHLORIDE
     Dates: end: 20160205
  2. RITUXIMAB [Suspect]
     Active Substance: RITUXIMAB
     Dates: end: 20171114

REACTIONS (1)
  - Keratoacanthoma [None]

NARRATIVE: CASE EVENT DATE: 20210518
